FAERS Safety Report 6303639-1 (Version None)
Quarter: 2009Q3

REPORT INFORMATION
  Report Type: 
  Country: None (occurrence: None)
  Receive Date: 20090807
  Receipt Date: 20090807
  Transmission Date: 20100115
  Serious: No
  Sender: FDA-Public Use
  Company Number: None

PATIENT
  Sex: Male
  Weight: 77.1115 kg

DRUGS (1)
  1. ZICAM ZICAM LIQUID NASAL GEL EXTREME ZICAM 11C [Suspect]
     Indication: SINUSITIS
     Dates: start: 20081227, end: 20090101

REACTIONS (1)
  - ANOSMIA [None]
